FAERS Safety Report 9498387 (Version 1)
Quarter: 2013Q3

REPORT INFORMATION
  Report Type: Spontaneous
  Country: GB (occurrence: None)
  Receive Date: 20130830
  Receipt Date: 20130830
  Transmission Date: 20140515
  Serious: Yes (Other)
  Sender: FDA-Public Use
  Company Number: GER/UKI/13/0034257

PATIENT
  Age: 51 Year
  Sex: Female
  Weight: 122 kg

DRUGS (2)
  1. FEXOFENADINE [Suspect]
     Indication: PRODUCT USED FOR UNKNOWN INDICATION
     Dates: start: 20130722
  2. CETIRIZINE (CETIRIZINE HYDROCHLORIDE) [Concomitant]

REACTIONS (1)
  - Palpitations [None]
